FAERS Safety Report 12551746 (Version 1)
Quarter: 2016Q3

REPORT INFORMATION
  Report Type: Spontaneous
  Country: US (occurrence: None)
  Receive Date: 20160712
  Receipt Date: 20160712
  Transmission Date: 20161109
  Serious: No
  Sender: FDA-Public Use
  Company Number: None

PATIENT
  Age: 32 Year
  Sex: Female
  Weight: 54.43 kg

DRUGS (2)
  1. REGLAN [Suspect]
     Active Substance: METOCLOPRAMIDE HYDROCHLORIDE
     Indication: NAUSEA
     Dosage: INTO A VEIN
  2. REGLAN [Suspect]
     Active Substance: METOCLOPRAMIDE HYDROCHLORIDE
     Indication: MIGRAINE
     Dosage: INTO A VEIN

REACTIONS (7)
  - Dry mouth [None]
  - Paralysis [None]
  - Heart rate increased [None]
  - Anxiety [None]
  - Feeling abnormal [None]
  - Dyspnoea [None]
  - Dizziness [None]

NARRATIVE: CASE EVENT DATE: 20160619
